APPROVED DRUG PRODUCT: HYDELTRA-TBA
Active Ingredient: PREDNISOLONE TEBUTATE
Strength: 20MG/ML
Dosage Form/Route: INJECTABLE;INJECTION
Application: N010562 | Product #001
Applicant: MERCK AND CO INC
Approved: Approved Prior to Jan 1, 1982 | RLD: No | RS: No | Type: DISCN